FAERS Safety Report 12822480 (Version 1)
Quarter: 2016Q4

REPORT INFORMATION
  Report Type: Spontaneous
  Country: US (occurrence: US)
  Receive Date: 20161006
  Receipt Date: 20161006
  Transmission Date: 20170207
  Serious: No
  Sender: FDA-Public Use
  Company Number: US-SHIONOGI, INC-2016000745

PATIENT
  Age: 63 Year
  Sex: Female

DRUGS (2)
  1. OSPHENA [Suspect]
     Active Substance: OSPEMIFENE
     Indication: DYSPAREUNIA
     Dosage: UNK
     Route: 065
     Dates: start: 201606
  2. OSPHENA [Suspect]
     Active Substance: OSPEMIFENE
     Dosage: UNK, EVERY OTHER DAY
     Route: 065
     Dates: start: 2016

REACTIONS (4)
  - Weight increased [Recovered/Resolved]
  - Off label use [Unknown]
  - Product use issue [Unknown]
  - Dizziness [Not Recovered/Not Resolved]

NARRATIVE: CASE EVENT DATE: 2016
